FAERS Safety Report 12038988 (Version 1)
Quarter: 2016Q1

REPORT INFORMATION
  Report Type: Spontaneous
  Country: US (occurrence: None)
  Receive Date: 20160205
  Receipt Date: 20160205
  Transmission Date: 20160526
  Serious: Yes (Life-Threatening)
  Sender: FDA-Public Use
  Company Number: None

PATIENT
  Age: 47 Year
  Sex: Female
  Weight: 81.65 kg

DRUGS (2)
  1. LAMOTRIGINE 200 MG [Suspect]
     Active Substance: LAMOTRIGINE
     Indication: DRUG THERAPY
     Route: 048
  2. BUPROPRION XL 150 MG [Suspect]
     Active Substance: BUPROPION
     Indication: DRUG THERAPY
     Route: 048

REACTIONS (6)
  - Suicidal behaviour [None]
  - Drug ineffective [None]
  - Therapeutic response changed [None]
  - Disease recurrence [None]
  - Product substitution issue [None]
  - Activities of daily living impaired [None]

NARRATIVE: CASE EVENT DATE: 20130204
